FAERS Safety Report 5557330-X (Version None)
Quarter: 2007Q4

REPORT INFORMATION
  Report Type: 
  Country: None (occurrence: None)
  Receive Date: 20071214
  Receipt Date: 20071207
  Transmission Date: 20080405
  Serious: No
  Sender: FDA-Public Use
  Company Number: IT-BAXTER-2007BH009285

PATIENT
  Age: 52 Year
  Sex: Male

DRUGS (2)
  1. PROTHROMPLEX-PARTIAL (STIM2) [Suspect]
     Indication: HAEMATURIA
     Route: 065
     Dates: start: 19870411, end: 19870411
  2. PROTHROMPLEX-PARTIAL (STIM2) [Suspect]
     Indication: BLADDER CANCER
     Route: 065
     Dates: start: 19870411, end: 19870411

REACTIONS (1)
  - HEPATITIS C [None]
